FAERS Safety Report 21386952 (Version 6)
Quarter: 2023Q1

REPORT INFORMATION
  Report Type: Report from Study
  Country: US (occurrence: US)
  Receive Date: 20220928
  Receipt Date: 20230302
  Transmission Date: 20230418
  Serious: Yes (Other)
  Sender: FDA-Public Use
  Company Number: US-NOVARTISTESTPH-NVSC2022US219221

PATIENT
  Sex: Female

DRUGS (1)
  1. COSENTYX [Suspect]
     Active Substance: SECUKINUMAB
     Indication: Psoriatic arthropathy
     Dosage: 150 MG, QW
     Route: 058
     Dates: start: 20220925

REACTIONS (9)
  - Psoriatic arthropathy [Recovering/Resolving]
  - Pain [Recovered/Resolved]
  - Injection site bruising [Recovering/Resolving]
  - Feeling abnormal [Recovering/Resolving]
  - Sinusitis [Recovering/Resolving]
  - Injection site mass [Unknown]
  - Accidental exposure to product [Unknown]
  - Product distribution issue [Unknown]
  - Wrong technique in device usage process [Unknown]
